FAERS Safety Report 22029409 (Version 1)
Quarter: 2023Q1

REPORT INFORMATION
  Report Type: Spontaneous
  Country: US (occurrence: US)
  Receive Date: 20230223
  Receipt Date: 20230223
  Transmission Date: 20230417
  Serious: No
  Sender: FDA-Public Use
  Company Number: US-BEH-2023155521

PATIENT
  Sex: Male

DRUGS (1)
  1. HIZENTRA [Suspect]
     Active Substance: HUMAN IMMUNOGLOBULIN G
     Indication: Humoral immune defect
     Dosage: 10 GRAM, QOW
     Route: 058
     Dates: start: 201910

REACTIONS (3)
  - Infusion site scar [Unknown]
  - Infusion site haemorrhage [Unknown]
  - Infusion site bruising [Unknown]
